FAERS Safety Report 7535460-0 (Version None)
Quarter: 2011Q2

REPORT INFORMATION
  Report Type: 
  Country: None (occurrence: None)
  Receive Date: 20110609
  Receipt Date: 20080530
  Transmission Date: 20111010
  Serious: Yes (Hospitalization)
  Sender: FDA-Public Use
  Company Number: PHHO2008JP07171

PATIENT
  Sex: Female

DRUGS (19)
  1. GLEEVEC [Suspect]
     Dosage: UNK
     Dates: start: 20041007, end: 20041019
  2. GLEEVEC [Suspect]
     Dosage: 400 MG, QD
     Route: 048
     Dates: start: 20041020, end: 20041229
  3. GLEEVEC [Suspect]
     Dosage: UNK MG, QD
     Route: 048
     Dates: start: 20050126, end: 20050907
  4. GLEEVEC [Suspect]
     Dosage: UNK MG, QD
     Route: 048
     Dates: start: 20051019, end: 20070812
  5. GLEEVEC [Suspect]
     Indication: GASTROINTESTINAL STROMAL TUMOUR
     Dosage: 400 MG, QD
     Dates: start: 20040204, end: 20040331
  6. GLEEVEC [Suspect]
     Dosage: 300 MG, QD
     Route: 048
     Dates: start: 20040707, end: 20040721
  7. GLEEVEC [Suspect]
     Dosage: UNK
     Dates: start: 20041230, end: 20050125
  8. GLEEVEC [Suspect]
     Dosage: UNK
     Dates: start: 20070813, end: 20070918
  9. GLEEVEC [Suspect]
     Dosage: UNK
     Dates: start: 20071009, end: 20080110
  10. GLEEVEC [Suspect]
     Dosage: UNK
     Dates: start: 20040401, end: 20040516
  11. GLEEVEC [Suspect]
     Dosage: UNK
     Dates: start: 20080211, end: 20080221
  12. GLEEVEC [Suspect]
     Dosage: UNK
     Dates: start: 20050908, end: 20051018
  13. GLEEVEC [Suspect]
     Dosage: UNK MG, QD
     Route: 048
     Dates: start: 20070919, end: 20071008
  14. GLEEVEC [Suspect]
     Dosage: UNK MG, QD
     Route: 048
     Dates: start: 20080111, end: 20080210
  15. GLEEVEC [Suspect]
     Dosage: UNK
     Dates: start: 20040722, end: 20040818
  16. GLEEVEC [Suspect]
     Dosage: 400 UNK, QD
     Dates: start: 20040819, end: 20041006
  17. GLEEVEC [Suspect]
     Dosage: 400 MG, QD
     Dates: start: 20040517, end: 20040616
  18. GLEEVEC [Suspect]
     Dosage: UNK
     Dates: start: 20040617, end: 20040706
  19. GLEEVEC [Suspect]
     Dosage: UNK MG, QD
     Route: 048
     Dates: start: 20080222

REACTIONS (1)
  - BILE DUCT STONE [None]
